FAERS Safety Report 9352685 (Version 2)
Quarter: 2013Q3

REPORT INFORMATION
  Report Type: Spontaneous
  Country: IT (occurrence: IT)
  Receive Date: 20130618
  Receipt Date: 20130801
  Transmission Date: 20140515
  Serious: Yes (Hospitalization)
  Sender: FDA-Public Use
  Company Number: IT-ROCHE-1237974

PATIENT
  Age: 43 Year
  Sex: Female

DRUGS (2)
  1. SYNFLEX (ITALY) [Suspect]
     Indication: HEADACHE
     Route: 048
     Dates: start: 20130528, end: 20130528
  2. METFORMIN HYDROCHLORIDE [Concomitant]

REACTIONS (2)
  - Pruritus [Recovering/Resolving]
  - Rash generalised [Recovering/Resolving]
